FAERS Safety Report 7467306-3 (Version None)
Quarter: 2011Q2

REPORT INFORMATION
  Report Type: 
  Country: None (occurrence: None)
  Receive Date: 20110509
  Receipt Date: 20110330
  Transmission Date: 20111010
  Serious: No
  Sender: FDA-Public Use
  Company Number: US-SANOFI-AVENTIS-2011SA020593

PATIENT
  Age: 69 Year
  Sex: Female

DRUGS (3)
  1. APIDRA [Suspect]
     Dosage: DOSE:2 UNIT(S)
     Route: 058
     Dates: start: 20110316, end: 20110319
  2. LANTUS [Suspect]
     Dosage: DOSE:40 UNIT(S)
     Route: 058
     Dates: start: 20110316
  3. APIDRA [Suspect]
     Dosage: DOSE:6 UNIT(S)
     Route: 058
     Dates: start: 20110320

REACTIONS (2)
  - BLOOD GLUCOSE INCREASED [None]
  - UNEVALUABLE EVENT [None]
